FAERS Safety Report 18540549 (Version 2)
Quarter: 2021Q2

REPORT INFORMATION
  Report Type: Spontaneous
  Country: US (occurrence: US)
  Receive Date: 20201124
  Receipt Date: 20210429
  Transmission Date: 20210717
  Serious: Yes (Congenital Anomaly)
  Sender: FDA-Public Use
  Company Number: US-VERTEX PHARMACEUTICALS-2020-023011

PATIENT
  Age: 0 Year
  Sex: Female
  Weight: 5 kg

DRUGS (15)
  1. CREON [Concomitant]
     Active Substance: PANCRELIPASE AMYLASE\PANCRELIPASE LIPASE\PANCRELIPASE PROTEASE
     Dosage: 3 CAPSULES, TID
     Route: 048
     Dates: start: 20200623
  2. COLACE [Concomitant]
     Active Substance: DOCUSATE SODIUM
     Dosage: 100 MG, QD
     Route: 048
  3. FLONASE [Concomitant]
     Active Substance: FLUTICASONE PROPIONATE
     Indication: RHINITIS
     Dosage: 2 SPRAY, PRN
     Route: 045
     Dates: start: 20200623
  4. TRIKAFTA [Suspect]
     Active Substance: ELEXACAFTOR\IVACAFTOR\TEZACAFTOR
     Indication: CYSTIC FIBROSIS
     Dosage: 2 TABS (100 MG ELEXACAFTOR/50 MG TEZACAFTOR/75 MG IVACAFTOR) AM AND 1 TAB (150 MG IVACAFTOR) PM
     Route: 048
     Dates: start: 201911
  5. PROVENTIL [Concomitant]
     Active Substance: ALBUTEROL
     Dosage: 3 MILLILITER, BID
     Route: 055
     Dates: start: 20200623
  6. VENTOLIN HFA [Concomitant]
     Active Substance: ALBUTEROL SULFATE
     Indication: WHEEZING
     Dosage: 2 PUFFS 4 HOURS, PRN
     Dates: start: 20200623
  7. ZYRTEC [Concomitant]
     Active Substance: CETIRIZINE HYDROCHLORIDE
     Dosage: 1 TABLET, QD
     Route: 048
     Dates: start: 20200623
  8. PULMOZYME [Concomitant]
     Active Substance: DORNASE ALFA
     Dosage: 2.5 MG, BID
     Dates: start: 20200623
  9. SODIUM CHLORIDE. [Concomitant]
     Active Substance: SODIUM CHLORIDE
     Dosage: 4 MILLILITER, BID
     Route: 055
     Dates: start: 20200623
  10. TOBI [Concomitant]
     Active Substance: TOBRAMYCIN
     Dosage: 5 MILLILITER, BID ALTERNATING 14 DAYS
     Route: 055
     Dates: start: 20200623
  11. ALCOHOL PREP PAD [Concomitant]
     Active Substance: ISOPROPYL ALCOHOL
     Dosage: UNK
     Dates: start: 20200717
  12. CAYSTON [Concomitant]
     Active Substance: AZTREONAM
     Dosage: 75 MG, TID
  13. ZITHROMAX [Concomitant]
     Active Substance: AZITHROMYCIN DIHYDRATE
     Dosage: 1 TABLET, QD
     Route: 048
     Dates: start: 20200623
  14. MOTRIN [Concomitant]
     Active Substance: IBUPROFEN
     Dosage: 1 TABLET Q 6 H
     Route: 048
     Dates: start: 20200929
  15. SINGULAIR [Concomitant]
     Active Substance: MONTELUKAST SODIUM
     Dosage: 1 TABLET, QD
     Route: 048
     Dates: start: 20200514

REACTIONS (3)
  - Cystic fibrosis [Not Recovered/Not Resolved]
  - Blood bilirubin unconjugated increased [Recovering/Resolving]
  - Sweat test abnormal [Unknown]

NARRATIVE: CASE EVENT DATE: 2020
